FAERS Safety Report 4982451-X (Version None)
Quarter: 2006Q2

REPORT INFORMATION
  Report Type: 
  Country: None (occurrence: None)
  Receive Date: 20060419
  Receipt Date: 20060406
  Transmission Date: 20061013
  Serious: Yes (Other)
  Sender: FDA-Public Use
  Company Number: 2006049187

PATIENT
  Sex: Male

DRUGS (1)
  1. CAMPTOSAR [Suspect]
     Indication: ILL-DEFINED DISORDER

REACTIONS (3)
  - DIABETES MELLITUS [None]
  - DIARRHOEA [None]
  - MUSCLE SPASMS [None]
